FAERS Safety Report 11363939 (Version 1)
Quarter: 2015Q3

REPORT INFORMATION
  Report Type: Spontaneous
  Country: US (occurrence: None)
  Receive Date: 20150810
  Receipt Date: 20150810
  Transmission Date: 20151125
  Serious: Yes (Life-Threatening)
  Sender: FDA-Public Use
  Company Number: None

PATIENT
  Age: 24 Year
  Sex: Female
  Weight: 79.38 kg

DRUGS (1)
  1. MIRENA [Suspect]
     Active Substance: LEVONORGESTREL

REACTIONS (7)
  - Depression [None]
  - Suicidal ideation [None]
  - Anger [None]
  - Irritability [None]
  - Weight increased [None]
  - Fatigue [None]
  - Smear cervix abnormal [None]

NARRATIVE: CASE EVENT DATE: 20150806
